FAERS Safety Report 6660359-1 (Version None)
Quarter: 2010Q1

REPORT INFORMATION
  Report Type: 
  Country: None (occurrence: None)
  Receive Date: 20100331
  Receipt Date: 20100318
  Transmission Date: 20100710
  Serious: No
  Sender: FDA-Public Use
  Company Number: US-JNJFOC-20100306234

PATIENT
  Sex: Male
  Weight: 118.84 kg

DRUGS (12)
  1. FENTANYL-100 [Suspect]
     Indication: PAIN
     Route: 062
  2. FENTANYL-100 [Suspect]
     Dosage: 100UG/HR AND 75UG/HR
     Route: 062
  3. BENICAR [Concomitant]
     Indication: HYPERTENSION
     Route: 048
  4. LORTAB [Concomitant]
     Indication: BREAKTHROUGH PAIN
     Dosage: 10/500MG
     Route: 048
  5. LASIX [Concomitant]
     Indication: HYPERTENSION
     Route: 048
  6. PRILOSEC [Concomitant]
     Indication: GASTROOESOPHAGEAL REFLUX DISEASE
     Route: 048
  7. ZOLOFT [Concomitant]
     Indication: DEPRESSION
     Route: 048
  8. MAXZIDE [Concomitant]
     Indication: HYPERTENSION
     Dosage: 375MG/25MG
     Route: 048
  9. CELEBREX [Concomitant]
     Indication: ARTHRITIS
     Route: 048
  10. AMBIEN [Concomitant]
     Indication: SLEEP DISORDER
     Route: 048
  11. TESTOSTERONE [Concomitant]
     Indication: DRUG USE FOR UNKNOWN INDICATION
     Dosage: 1 EVERY SUNDAY
     Route: 048
  12. FLEXERIL [Concomitant]
     Indication: MUSCLE SPASMS
     Route: 048

REACTIONS (7)
  - HEADACHE [None]
  - LIBIDO DECREASED [None]
  - PANIC DISORDER [None]
  - PRODUCT QUALITY ISSUE [None]
  - SOMNOLENCE [None]
  - TREMOR [None]
  - WRONG TECHNIQUE IN DRUG USAGE PROCESS [None]
